FAERS Safety Report 8265638-2 (Version None)
Quarter: 2012Q2

REPORT INFORMATION
  Report Type: 
  Country: None (occurrence: None)
  Receive Date: 20120406
  Receipt Date: 20120323
  Transmission Date: 20120825
  Serious: Yes (Other)
  Sender: FDA-Public Use
  Company Number: CHPA2012US004989

PATIENT
  Sex: Male

DRUGS (2)
  1. EXCEDRIN (MIGRAINE) [Suspect]
     Indication: MIGRAINE
     Dosage: UNK, UNK
     Route: 048
  2. GAS-X [Suspect]
     Dosage: UNK, UNK
     Route: 048

REACTIONS (4)
  - MALAISE [None]
  - GASTRIC ULCER [None]
  - ABDOMINAL PAIN UPPER [None]
  - NAUSEA [None]
